FAERS Safety Report 8785049 (Version 3)
Quarter: 2012Q4

REPORT INFORMATION
  Report Type: 
  Country: US (occurrence: US)
  Receive Date: 20120914
  Receipt Date: 20121005
  Transmission Date: 20130627
  Serious: No
  Sender: FDA-Public Use
  Company Number: US-ASTRAZENECA-2012SE65747

PATIENT
  Age: 71 Year
  Sex: Female

DRUGS (2)
  1. OMEPRAZOLE [Suspect]
     Route: 048
  2. PLAVIX [Concomitant]

REACTIONS (5)
  - Dysphagia [Unknown]
  - Gastrointestinal disorder [Unknown]
  - Diverticulum [Unknown]
  - Frequent bowel movements [Unknown]
  - Drug ineffective [Unknown]
